FAERS Safety Report 21208641 (Version 2)
Quarter: 2022Q3

REPORT INFORMATION
  Report Type: Spontaneous
  Country: FR (occurrence: FR)
  Receive Date: 20220812
  Receipt Date: 20220907
  Transmission Date: 20221027
  Serious: Yes (Disabling, Congenital Anomaly, Other)
  Sender: FDA-Public Use
  Company Number: FR-SERVIER-S22007175

PATIENT
  Sex: Male

DRUGS (3)
  1. ALPRAZOLAM [Suspect]
     Active Substance: ALPRAZOLAM
     Dosage: 0.5 MG, QID (4 TIMES A DAY)
     Route: 064
     Dates: start: 20110507, end: 20120203
  2. ZYPREXA [Suspect]
     Active Substance: OLANZAPINE
     Route: 064
     Dates: start: 20110507, end: 20120203
  3. TIANEPTINE [Suspect]
     Active Substance: TIANEPTINE
     Dosage: 12.5 UNK, 3X/DAY
     Route: 064
     Dates: start: 20110507, end: 20120203

REACTIONS (9)
  - Maternal exposure during pregnancy [Unknown]
  - Cerebral atrophy congenital [Not Recovered/Not Resolved]
  - Selective eating disorder [Recovered/Resolved]
  - Photosensitivity reaction [Unknown]
  - Psychotic disorder [Not Recovered/Not Resolved]
  - Cognitive disorder [Not Recovered/Not Resolved]
  - Motor dysfunction [Recovered/Resolved]
  - Hypertonia neonatal [Recovered/Resolved]
  - Tremor neonatal [Recovered/Resolved]

NARRATIVE: CASE EVENT DATE: 20120203
